FAERS Safety Report 9127175 (Version 1)
Quarter: 2013Q1

REPORT INFORMATION
  Report Type: Spontaneous
  Country: US (occurrence: US)
  Receive Date: 20130125
  Receipt Date: 20130125
  Transmission Date: 20140127
  Serious: Yes (Death, Other)
  Sender: FDA-Public Use
  Company Number: PHHY2013US006782

PATIENT
  Age: 50 Year
  Sex: Male

DRUGS (3)
  1. METFORMIN [Suspect]
     Dosage: (INGESTIONAL)
  2. GLYBURIDE [Suspect]
  3. ETHANOL [Suspect]

REACTIONS (2)
  - Completed suicide [Fatal]
  - Drug level increased [Unknown]
